FAERS Safety Report 12751875 (Version 1)
Quarter: 2016Q3

REPORT INFORMATION
  Report Type: Spontaneous
  Country: NL (occurrence: NL)
  Receive Date: 20160915
  Receipt Date: 20160915
  Transmission Date: 20161109
  Serious: No
  Sender: FDA-Public Use
  Company Number: NL-JAZZ-2016-NL-014577

PATIENT

DRUGS (4)
  1. ERWINASE [Suspect]
     Active Substance: ASPARAGINASE ERWINIA CHRYSANTHEMI
     Dosage: 20000 IU/M2, 3 TIMES A WEEK INTENSIFCATION 20
  2. ERWINASE [Suspect]
     Active Substance: ASPARAGINASE ERWINIA CHRYSANTHEMI
     Dosage: 20000 IU/M2, 3 TIMES PER WEEK, INTENSIFICATION 14
  3. CLEMASTINE [Concomitant]
     Active Substance: CLEMASTINE
     Indication: PRODUCT USED FOR UNKNOWN INDICATION
  4. ERWINASE [Suspect]
     Active Substance: ASPARAGINASE ERWINIA CHRYSANTHEMI
     Indication: ACUTE LYMPHOCYTIC LEUKAEMIA
     Dosage: 20000 IU/M2, 3 TIMES A WEEK, INTENSIFICATION 12

REACTIONS (4)
  - Oedema [Unknown]
  - Dyspnoea [Unknown]
  - Pallor [Unknown]
  - Nausea [Unknown]
